FAERS Safety Report 7078950-X (Version None)
Quarter: 2010Q4

REPORT INFORMATION
  Report Type: 
  Country: None (occurrence: None)
  Receive Date: 20101102
  Receipt Date: 20101027
  Transmission Date: 20110411
  Serious: No
  Sender: FDA-Public Use
  Company Number: US-PFIZER INC-2010137129

PATIENT
  Sex: Female
  Weight: 61.224 kg

DRUGS (2)
  1. CELEBREX [Suspect]
     Dosage: 100 MG, 1X/DAY
     Route: 048
     Dates: start: 20100604, end: 20100713
  2. NEXIUM [Suspect]
     Dosage: 100 MG, 1X/DAY
     Route: 048
     Dates: start: 20100604, end: 20100713

REACTIONS (3)
  - ABDOMINAL DISCOMFORT [None]
  - APHAGIA [None]
  - PAIN [None]
